FAERS Safety Report 7966131-4 (Version None)
Quarter: 2011Q4

REPORT INFORMATION
  Report Type: 
  Country: None (occurrence: None)
  Receive Date: 20111208
  Receipt Date: 20111201
  Transmission Date: 20120403
  Serious: Yes (Hospitalization, Other)
  Sender: FDA-Public Use
  Company Number: JP-CEPHALON-2011004324

PATIENT
  Sex: Male
  Weight: 53 kg

DRUGS (5)
  1. GRANISETRON HCL [Concomitant]
  2. ACYCLOVIR [Concomitant]
     Dates: start: 20110113, end: 20110313
  3. BENDAMUSTINE HCL [Suspect]
     Indication: MANTLE CELL LYMPHOMA
     Route: 042
     Dates: start: 20110113
  4. SULFAMETHOXAZOLE AND TRIMETHOPRIM [Concomitant]
     Dates: start: 20110113, end: 20110223
  5. LACTOMIN [Concomitant]
     Dates: start: 20110127, end: 20110216

REACTIONS (4)
  - WHITE BLOOD CELL COUNT DECREASED [None]
  - RENAL DISORDER [None]
  - PLATELET COUNT DECREASED [None]
  - NEUTROPHIL COUNT DECREASED [None]
